FAERS Safety Report 7254090-1 (Version None)
Quarter: 2011Q1

REPORT INFORMATION
  Report Type: 
  Country: None (occurrence: None)
  Receive Date: 20110129
  Receipt Date: 20100416
  Transmission Date: 20110831
  Serious: No
  Sender: FDA-Public Use
  Company Number: US-ABBOTT-10P-163-0640263-00

PATIENT
  Sex: Male
  Weight: 202.03 kg

DRUGS (9)
  1. HUMIRA [Suspect]
     Dates: start: 20100401
  2. APRENOLOL [Concomitant]
     Indication: HYPERTENSION
  3. SIMVASTATIN [Concomitant]
  4. DILTIAZEM [Concomitant]
     Indication: HYPERTENSION
  5. HUMIRA [Suspect]
     Indication: PSORIASIS
     Dates: start: 20100409, end: 20100416
  6. GLIPIZIDE [Concomitant]
     Indication: DIABETES MELLITUS
  7. LISINOPRIL [Concomitant]
  8. DYAZIDE [Concomitant]
  9. UNKNOWN MEDICATION [Concomitant]
     Indication: PSORIASIS
     Route: 061

REACTIONS (3)
  - DRUG DOSE OMISSION [None]
  - WRONG TECHNIQUE IN DRUG USAGE PROCESS [None]
  - INJECTION SITE PAIN [None]
